FAERS Safety Report 21960200 (Version 2)
Quarter: 2023Q1

REPORT INFORMATION
  Report Type: Spontaneous
  Country: US (occurrence: US)
  Receive Date: 20230207
  Receipt Date: 20230320
  Transmission Date: 20230417
  Serious: No
  Sender: FDA-Public Use
  Company Number: US-BRISTOL-MYERS SQUIBB COMPANY-2023-010157

PATIENT
  Age: 78 Year
  Sex: Female
  Weight: 62.14 kg

DRUGS (9)
  1. ELIQUIS [Suspect]
     Active Substance: APIXABAN
     Indication: Cerebrovascular accident prophylaxis
     Dosage: ADDITIONAL INFORMATION FOR OTHER MEDICINES ELIQUIS: BEEN ON IT FOR 2 YEARS.
     Dates: start: 2021
  2. VYNDAMAX [Suspect]
     Active Substance: TAFAMIDIS
     Indication: Amyloidosis
     Dosage: SHE THINKS IT IS 61MG AND TAKES IT EVERY DAY.?BEEN TAKING IT FOR 2 YEARS.
     Dates: start: 2021
  3. VYNDAMAX [Suspect]
     Active Substance: TAFAMIDIS
     Indication: Coronary arterial stent insertion
  4. BRILINTA [Concomitant]
     Active Substance: TICAGRELOR
     Indication: Product used for unknown indication
     Dosage: ADDITIONAL INFORMATION FOR OTHER MEDICINES BRILINTA: BEEN ON IT FOR 2 YEARS.
     Dates: start: 2021
  5. KLOR-CON [Concomitant]
     Active Substance: POTASSIUM CHLORIDE
     Indication: Mineral supplementation
     Dosage: ADDITIONAL INFORMATION FOR OTHER MEDICINES BRILINTA: BEEN ON IT FOR 2 YEARS.
     Route: 048
     Dates: start: 2021
  6. AMIODARONE HYDROCHLORIDE [Concomitant]
     Active Substance: AMIODARONE HYDROCHLORIDE
     Indication: Product used for unknown indication
  7. BUMETANIDE [Concomitant]
     Active Substance: BUMETANIDE
     Indication: Product used for unknown indication
     Dosage: 2MG TABLET; TAKES 1.5 TABLETS IN THE MORNING AND 1.5 TABLETS AT NIGHT.?INDICATION: WATER PILL.
  8. SPIRONOLACTONE [Concomitant]
     Active Substance: SPIRONOLACTONE
     Indication: Blood pressure abnormal
     Dosage: SPIRONOLACTONE: CHANGED FROM ONE PILL DOWN TO HALF A PILL BECAUSE BLOOD PRESSURE IS NOT THAT BAD.?25
  9. VITAMINS NOS [Concomitant]
     Active Substance: VITAMINS
     Indication: Product used for unknown indication

REACTIONS (1)
  - No adverse event [Unknown]
